FAERS Safety Report 22113500 (Version 1)
Quarter: 2023Q1

REPORT INFORMATION
  Report Type: Spontaneous
  Country: US (occurrence: None)
  Receive Date: 20230320
  Receipt Date: 20230320
  Transmission Date: 20230417
  Serious: No
  Sender: FDA-Public Use
  Company Number: 2023A046601

PATIENT
  Sex: Female
  Weight: 53.1 kg

DRUGS (1)
  1. SYMBICORT [Suspect]
     Active Substance: BUDESONIDE\FORMOTEROL FUMARATE DIHYDRATE
     Indication: Chronic obstructive pulmonary disease
     Dosage: 160/4.5 MCG, 120 INHALATIONS, 2 PUFFS 2 TIMES A DAY
     Route: 055

REACTIONS (4)
  - Visual impairment [Unknown]
  - Device use issue [Unknown]
  - Incorrect dose administered by device [Unknown]
  - Device malfunction [Unknown]
